FAERS Safety Report 5723232-9 (Version None)
Quarter: 2008Q2

REPORT INFORMATION
  Report Type: 
  Country: None (occurrence: None)
  Receive Date: 20080430
  Receipt Date: 20080324
  Transmission Date: 20081010
  Serious: No
  Sender: FDA-Public Use
  Company Number: US-ASTRAZENECA-2008UW02763

PATIENT
  Age: 26959 Day
  Sex: Female
  Weight: 74.8 kg

DRUGS (6)
  1. NEXIUM [Suspect]
     Indication: GASTROOESOPHAGEAL REFLUX DISEASE
     Route: 048
  2. NEXIUM [Suspect]
     Route: 048
  3. RHINOCORT [Concomitant]
     Indication: RHINITIS
     Dosage: ONE SPRAY EACH NOSTRIL HS
     Route: 045
     Dates: start: 20071117
  4. ASMANEX TWISTHALER [Concomitant]
     Indication: ASTHMA
     Route: 055
     Dates: start: 20080115
  5. TRIAMCINOLONE [Concomitant]
     Indication: DERMATITIS
     Route: 061
     Dates: start: 20080118
  6. OPTIVAR [Concomitant]
     Indication: CONJUNCTIVITIS
     Route: 047
     Dates: start: 20071117

REACTIONS (1)
  - URINARY TRACT INFECTION [None]
